FAERS Safety Report 4789330-1 (Version None)
Quarter: 2005Q3

REPORT INFORMATION
  Report Type: 
  Country: None (occurrence: None)
  Receive Date: 20050929
  Receipt Date: 20030809
  Transmission Date: 20060218
  Serious: No
  Sender: FDA-Public Use
  Company Number: 05P-163-0307873

PATIENT
  Age: 73 Year
  Sex: Female
  Weight: 40.3701 kg

DRUGS (4)
  1. HUMIRA                    (ADALIMUMAB) [Suspect]
     Dates: start: 20050501
  2. METHOTREXATE SODIUM [Concomitant]
  3. ATENOLOL [Concomitant]
  4. ALENDRONATE SODIUM [Concomitant]

REACTIONS (1)
  - RASH [None]
